FAERS Safety Report 20819830 (Version 5)
Quarter: 2023Q1

REPORT INFORMATION
  Report Type: Report from Study
  Country: US (occurrence: US)
  Receive Date: 20220512
  Receipt Date: 20230308
  Transmission Date: 20230417
  Serious: Yes (Hospitalization, Other)
  Sender: FDA-Public Use
  Company Number: US-NOVARTISPH-NVSC2022US103267

PATIENT
  Sex: Female

DRUGS (3)
  1. COSENTYX [Suspect]
     Active Substance: SECUKINUMAB
     Indication: Psoriasis
     Dosage: 300 MG, QMO
     Route: 058
     Dates: start: 202203
  2. COSENTYX [Suspect]
     Active Substance: SECUKINUMAB
     Dosage: UNK
     Route: 065
     Dates: start: 20220429
  3. COSENTYX [Suspect]
     Active Substance: SECUKINUMAB
     Dosage: UNK (FRIDAY)
     Route: 065

REACTIONS (7)
  - Cardiac failure congestive [Recovering/Resolving]
  - Hypervolaemia [Recovered/Resolved]
  - Pneumonia [Recovered/Resolved]
  - Asthma [Recovering/Resolving]
  - Animal bite [Recovered/Resolved]
  - Diarrhoea [Recovered/Resolved]
  - Mental disorder [Unknown]
